FAERS Safety Report 13349089 (Version 1)
Quarter: 2017Q1

REPORT INFORMATION
  Report Type: Spontaneous
  Country: US (occurrence: US)
  Receive Date: 20170320
  Receipt Date: 20170320
  Transmission Date: 20170428
  Serious: No
  Sender: FDA-Public Use
  Company Number: US-TEVA-735986ACC

PATIENT
  Age: 52 Year
  Sex: Male

DRUGS (1)
  1. CICLOSPORIN CAPSULES USP MODIFIED 100 MG [Suspect]
     Active Substance: CYCLOSPORINE
     Indication: RENAL DISORDER
     Dates: start: 20161116

REACTIONS (2)
  - Nausea [Unknown]
  - Abdominal pain upper [Unknown]
